FAERS Safety Report 16017096 (Version 3)
Quarter: 2020Q1

REPORT INFORMATION
  Report Type: Spontaneous
  Country: US (occurrence: US)
  Receive Date: 20190228
  Receipt Date: 20200130
  Transmission Date: 20200409
  Serious: Yes (Death)
  Sender: FDA-Public Use
  Company Number: US-ORPHAN EUROPE-2063330

PATIENT
  Age: 72 Year
  Sex: Female

DRUGS (1)
  1. CYSTADANE [Suspect]
     Active Substance: BETAINE
     Indication: HOMOCYSTINURIA
     Route: 048

REACTIONS (3)
  - Urinary incontinence [Not Recovered/Not Resolved]
  - Accident [Fatal]
  - Alopecia [Recovering/Resolving]

NARRATIVE: CASE EVENT DATE: 201905
